FAERS Safety Report 9283672 (Version 2)
Quarter: 2013Q2

REPORT INFORMATION
  Report Type: Report from Study
  Country: CN (occurrence: CN)
  Receive Date: 20130510
  Receipt Date: 20130527
  Transmission Date: 20140414
  Serious: Yes (Death)
  Sender: FDA-Public Use
  Company Number: PHHY2013CN046079

PATIENT
  Sex: Female

DRUGS (1)
  1. EXJADE [Suspect]
     Indication: THALASSAEMIA
     Dosage: 260 MG, PER DAY
     Route: 048
     Dates: start: 20120216

REACTIONS (2)
  - Thalassaemia [Fatal]
  - Disease progression [Fatal]
